FAERS Safety Report 15003635 (Version 2)
Quarter: 2018Q2

REPORT INFORMATION
  Report Type: Spontaneous
  Country: BR (occurrence: BR)
  Receive Date: 20180613
  Receipt Date: 20180621
  Transmission Date: 20180711
  Serious: Yes (Hospitalization)
  Sender: FDA-Public Use
  Company Number: BR-ABBVIE-18P-020-2385509-00

PATIENT
  Sex: Male
  Weight: 54.5 kg

DRUGS (3)
  1. RISPERIDONE. [Concomitant]
     Active Substance: RISPERIDONE
     Indication: SCHIZOPHRENIA
     Dosage: 2 IN THE MORNING / 1 AT AFTERNOON / 1 AT NIGHT
     Route: 048
  2. NEOZINE [Concomitant]
     Active Substance: LEVOMEPROMAZINE
     Indication: PSYCHIATRIC SYMPTOM
     Dosage: WHEN PATIENT HAS INSOMNIA
     Route: 048
  3. DEPAKOTE ER [Suspect]
     Active Substance: DIVALPROEX SODIUM
     Indication: SCHIZOPHRENIA
     Dosage: 1 IN THE MORNING / 1 AT AFTERNOON / 2 AT NIGHT
     Route: 048
     Dates: start: 2016, end: 201712

REACTIONS (10)
  - Hypophagia [Unknown]
  - Therapeutic response unexpected [Unknown]
  - Hallucination [Unknown]
  - Fluid intake reduced [Unknown]
  - Drug dose omission [Unknown]
  - Vertigo [Unknown]
  - Malaise [Unknown]
  - Hallucination, auditory [Unknown]
  - Off label use [Unknown]
  - Inappropriate schedule of drug administration [Unknown]

NARRATIVE: CASE EVENT DATE: 2016
